FAERS Safety Report 15978209 (Version 2)
Quarter: 2019Q1

REPORT INFORMATION
  Report Type: Spontaneous
  Country: MX (occurrence: MX)
  Receive Date: 20190218
  Receipt Date: 20190227
  Transmission Date: 20190418
  Serious: Yes (Other)
  Sender: FDA-Public Use
  Company Number: MX-BEH-2019099393

PATIENT
  Age: 11 Month
  Sex: Male

DRUGS (1)
  1. HIGLOBIN [Suspect]
     Active Substance: HUMAN IMMUNOGLOBULIN G
     Indication: HYPOGAMMAGLOBULINAEMIA
     Dosage: 1 G, NOT APPLICABLE REPORTED AS N.A.
     Route: 042

REACTIONS (6)
  - Influenza [Unknown]
  - Hypotension [Recovered/Resolved]
  - Septic shock [Unknown]
  - Anuria [Unknown]
  - Nosocomial infection [Unknown]
  - Bacterial infection [Unknown]
